FAERS Safety Report 7300725-4 (Version None)
Quarter: 2011Q1

REPORT INFORMATION
  Report Type: 
  Country: None (occurrence: None)
  Receive Date: 20110105
  Receipt Date: 20100202
  Transmission Date: 20110831
  Serious: Yes (Death, Other)
  Sender: FDA-Public Use
  Company Number: 296442

PATIENT
  Age: 41 Year
  Sex: Male

DRUGS (5)
  1. AMIODARONE (AMIODARONE) [Concomitant]
  2. ACTIVASE [Suspect]
     Indication: CARDIAC ARREST
     Dosage: 50 MG, IV BOLUS
     Route: 040
     Dates: start: 20091231
  3. EPINEPHRINE [Concomitant]
  4. SODIUM BICARBONATE IN PLASTIC CONTAINER [Concomitant]
  5. FLUIDS (GENERIC COMPONENT(S) [Concomitant]

REACTIONS (1)
  - CARDIAC ARREST [None]
